FAERS Safety Report 9157306 (Version 1)
Quarter: 2013Q1

REPORT INFORMATION
  Report Type: Spontaneous
  Country: US (occurrence: None)
  Receive Date: 20130308
  Receipt Date: 20130308
  Transmission Date: 20140127
  Serious: No
  Sender: FDA-Public Use
  Company Number: None

PATIENT
  Age: 66 Year
  Sex: Male

DRUGS (1)
  1. BENICAR [Suspect]
     Indication: BLOOD PRESSURE
     Route: 048
     Dates: start: 20130207, end: 20130226

REACTIONS (4)
  - Dizziness [None]
  - Hypersensitivity [None]
  - Asthenia [None]
  - Myalgia [None]
